FAERS Safety Report 18654134 (Version 10)
Quarter: 2021Q3

REPORT INFORMATION
  Report Type: Spontaneous
  Country: US (occurrence: US)
  Receive Date: 20201223
  Receipt Date: 20210814
  Transmission Date: 20211014
  Serious: Yes (Hospitalization)
  Sender: FDA-Public Use
  Company Number: US-GLOBAL BLOOD THERAPEUTICS INC-US-GBT-20-04199

PATIENT
  Age: 34 Year
  Sex: Female

DRUGS (2)
  1. DEFERASIROX. [Concomitant]
     Active Substance: DEFERASIROX
     Indication: IRON METABOLISM DISORDER
     Dosage: NOT PROVIDED
  2. OXBRYTA [Suspect]
     Active Substance: VOXELOTOR
     Indication: SICKLE CELL DISEASE
     Route: 048
     Dates: start: 20201009, end: 202107

REACTIONS (16)
  - Sickle cell anaemia with crisis [Unknown]
  - Therapy cessation [Unknown]
  - Sickle cell anaemia with crisis [Unknown]
  - Sickle cell anaemia with crisis [Unknown]
  - Product dose omission issue [Unknown]
  - Sickle cell anaemia with crisis [Not Recovered/Not Resolved]
  - Sickle cell anaemia with crisis [Not Recovered/Not Resolved]
  - Sickle cell anaemia with crisis [Unknown]
  - Acute chest syndrome [Unknown]
  - Sickle cell anaemia with crisis [Not Recovered/Not Resolved]
  - Sickle cell anaemia with crisis [Not Recovered/Not Resolved]
  - Swelling [Not Recovered/Not Resolved]
  - Therapy non-responder [Unknown]
  - Insurance issue [Unknown]
  - Sickle cell anaemia with crisis [Unknown]
  - Nausea [Unknown]

NARRATIVE: CASE EVENT DATE: 2020
